FAERS Safety Report 5939819-4 (Version None)
Quarter: 2008Q4

REPORT INFORMATION
  Report Type: 
  Country: None (occurrence: None)
  Receive Date: 20081031
  Receipt Date: 20081031
  Transmission Date: 20090506
  Serious: Yes (Other)
  Sender: FDA-Public Use
  Company Number: None

PATIENT
  Age: 75 Year
  Sex: Male
  Weight: 86.1834 kg

DRUGS (2)
  1. LEVAQUIN [Suspect]
     Indication: PNEUMONIA
     Dates: start: 20030101
  2. CIPRO [Suspect]
     Indication: STAPHYLOCOCCAL INFECTION
     Dates: start: 20080101

REACTIONS (3)
  - ARTHRALGIA [None]
  - ASTHENIA [None]
  - STAPHYLOCOCCAL INFECTION [None]
